FAERS Safety Report 25752596 (Version 1)
Quarter: 2025Q3

REPORT INFORMATION
  Report Type: Spontaneous
  Country: KR (occurrence: KR)
  Receive Date: 20250902
  Receipt Date: 20250902
  Transmission Date: 20251020
  Serious: Yes (Death, Other)
  Sender: DAIICHI
  Company Number: KR-DAIICHI SANKYO, INC.-DS-2025-162053-KR

PATIENT
  Age: 51 Year
  Sex: Female

DRUGS (1)
  1. ENHERTU [Suspect]
     Active Substance: FAM-TRASTUZUMAB DERUXTECAN-NXKI
     Indication: Breast cancer
     Route: 042
     Dates: start: 20250716, end: 20250716

REACTIONS (1)
  - Breast cancer [Fatal]

NARRATIVE: CASE EVENT DATE: 20250806
